FAERS Safety Report 17408258 (Version 1)
Quarter: 2020Q1

REPORT INFORMATION
  Report Type: Spontaneous
  Country: US (occurrence: US)
  Receive Date: 20200212
  Receipt Date: 20200212
  Transmission Date: 20200409
  Serious: No
  Sender: FDA-Public Use
  Company Number: US-PURDUE-USA-2019-0148994

PATIENT
  Sex: Female

DRUGS (1)
  1. BUTRANS [Suspect]
     Active Substance: BUPRENORPHINE
     Indication: PAIN MANAGEMENT
     Dosage: 10 MCG/HR, UNK
     Route: 062
     Dates: start: 2018, end: 20191030

REACTIONS (3)
  - Application site rash [Unknown]
  - Application site erythema [Unknown]
  - Application site erosion [Unknown]

NARRATIVE: CASE EVENT DATE: 201909
